FAERS Safety Report 6647227-6 (Version None)
Quarter: 2010Q1

REPORT INFORMATION
  Report Type: 
  Country: None (occurrence: None)
  Receive Date: 20100323
  Receipt Date: 20100323
  Transmission Date: 20100710
  Serious: Yes (Disabling)
  Sender: FDA-Public Use
  Company Number: A0838324A

PATIENT
  Age: 50 Year
  Sex: Female

DRUGS (4)
  1. ADVAIR DISKUS 100/50 [Suspect]
     Indication: ASTHMA
     Dosage: 1PUFF TWICE PER DAY
     Route: 055
     Dates: start: 20091216, end: 20100102
  2. ASMANEX TWISTHALER [Concomitant]
  3. BENADRYL [Concomitant]
  4. TPN [Concomitant]

REACTIONS (4)
  - ASTHENOPIA [None]
  - HEADACHE [None]
  - MYDRIASIS [None]
  - VISUAL IMPAIRMENT [None]
